FAERS Safety Report 25908657 (Version 1)
Quarter: 2025Q4

REPORT INFORMATION
  Report Type: Report from Study
  Country: US (occurrence: US)
  Receive Date: 20251010
  Receipt Date: 20251010
  Transmission Date: 20260118
  Serious: Yes (Other)
  Sender: ABBVIE
  Company Number: US-ABBVIE-6493354

PATIENT
  Age: 70 Year
  Sex: Female

DRUGS (1)
  1. CREON [Suspect]
     Active Substance: PANCRELIPASE AMYLASE\PANCRELIPASE LIPASE\PANCRELIPASE PROTEASE
     Indication: Product used for unknown indication
     Dosage: 24,000 UNITS WITH 2 PER MEAL AND 1 PER SNACK
     Route: 048
     Dates: start: 2017

REACTIONS (6)
  - Type 1 diabetes mellitus [Unknown]
  - Pancreatitis chronic [Unknown]
  - Pancreatic disorder [Unknown]
  - Benign neoplasm [Recovering/Resolving]
  - Quality of life decreased [Unknown]
  - Pancreatic cyst [Not Recovered/Not Resolved]

NARRATIVE: CASE EVENT DATE: 20180101
